FAERS Safety Report 24073049 (Version 2)
Quarter: 2025Q2

REPORT INFORMATION
  Report Type: Spontaneous
  Country: US (occurrence: US)
  Receive Date: 20240710
  Receipt Date: 20250527
  Transmission Date: 20250716
  Serious: Yes (Other)
  Sender: RECORDATI
  Company Number: US-RECORDATI RARE DISEASE INC.-2024000845

PATIENT
  Sex: Male

DRUGS (8)
  1. PANHEMATIN [Suspect]
     Active Substance: HEMIN
     Indication: Porphyria acute
  2. PANHEMATIN [Suspect]
     Active Substance: HEMIN
     Dates: start: 20240131, end: 2024
  3. PANHEMATIN [Suspect]
     Active Substance: HEMIN
     Dates: start: 20240404
  4. PANHEMATIN [Suspect]
     Active Substance: HEMIN
     Dates: start: 20250507
  5. TOPIRAMATE [Suspect]
     Active Substance: TOPIRAMATE
     Indication: Product used for unknown indication
  6. GABAPENTIN [Suspect]
     Active Substance: GABAPENTIN
     Indication: Product used for unknown indication
  7. DEPAKOTE [Concomitant]
     Active Substance: DIVALPROEX SODIUM
     Indication: Product used for unknown indication
     Dosage: 250 MG, BID
     Route: 048
  8. TOPAMAX [Concomitant]
     Active Substance: TOPIRAMATE
     Indication: Product used for unknown indication
     Route: 048

REACTIONS (3)
  - Chronic kidney disease [Unknown]
  - Renal impairment [Recovering/Resolving]
  - Therapeutic product effect incomplete [Recovered/Resolved]
